FAERS Safety Report 9338811 (Version 1)
Quarter: 2013Q2

REPORT INFORMATION
  Report Type: Spontaneous
  Country: US (occurrence: None)
  Receive Date: 20130605
  Receipt Date: 20130605
  Transmission Date: 20140414
  Serious: Yes (Life-Threatening, Hospitalization, Other)
  Sender: FDA-Public Use
  Company Number: None

PATIENT
  Age: 48 Year
  Sex: Female
  Weight: 72 kg

DRUGS (17)
  1. CIPROFLOXACIN [Suspect]
     Indication: OSTEOMYELITIS
     Dosage: Q 12 H
     Route: 042
     Dates: start: 20130523, end: 20130530
  2. ERTAPENEM [Concomitant]
     Indication: OSTEOMYELITIS
     Dosage: Q 24 H
     Route: 042
     Dates: start: 20130523, end: 20130530
  3. AMITRYPTYLINE [Concomitant]
  4. AMLODIPINE [Concomitant]
  5. FERROUS SULFATE [Concomitant]
  6. CALCITROL [Concomitant]
  7. FUROSEMIDE [Concomitant]
  8. INSULIN DETEMIR [Concomitant]
  9. INSULIN ASPART [Concomitant]
  10. LISINOPRIL [Concomitant]
  11. LEVOTHYROXINE [Concomitant]
  12. METOPROLOL [Concomitant]
  13. PRAVASTATIN [Concomitant]
  14. SEVELEMER [Concomitant]
  15. SODIUM BICARB [Concomitant]
  16. MULTIVITAMINS [Concomitant]
  17. CREON [Concomitant]

REACTIONS (4)
  - Grand mal convulsion [None]
  - Tardive dyskinesia [None]
  - Confusional state [None]
  - Mental status changes [None]
